FAERS Safety Report 19682084 (Version 2)
Quarter: 2021Q3

REPORT INFORMATION
  Report Type: Spontaneous
  Country: US (occurrence: US)
  Receive Date: 20210810
  Receipt Date: 20210811
  Transmission Date: 20211014
  Serious: No
  Sender: FDA-Public Use
  Company Number: US-B.I. PHARMACEUTICALS,INC./RIDGEFIELD-2021-BI-119688

PATIENT
  Age: 22 Year
  Sex: Male

DRUGS (1)
  1. METACAM [Suspect]
     Active Substance: MELOXICAM
     Indication: SEASONAL ALLERGY
     Dosage: METACAM (MELOXICAM)0.5 MG/ML ORAL FOR DOGS (METACAM MELOXICAM 0.5 MG/ML; ORAL; STRENGTH: 0.5 MG/ML
     Route: 047
     Dates: start: 20210802

REACTIONS (3)
  - Ocular hyperaemia [Recovered/Resolved]
  - Eye irritation [Recovered/Resolved]
  - Accidental exposure to product [Recovered/Resolved]

NARRATIVE: CASE EVENT DATE: 20210802
